FAERS Safety Report 8066017-3 (Version None)
Quarter: 2012Q1

REPORT INFORMATION
  Report Type: 
  Country: None (occurrence: None)
  Receive Date: 20120124
  Receipt Date: 20120113
  Transmission Date: 20120608
  Serious: Yes (Other)
  Sender: FDA-Public Use
  Company Number: NL-NOVOPROD-341485

PATIENT
  Age: 28 Year
  Sex: Female
  Weight: 136.6 kg

DRUGS (2)
  1. OXAZEPAM [Concomitant]
     Indication: PANIC ATTACK
     Dosage: UNK
     Dates: start: 20061201
  2. LIRAGLUTIDE FLEXPEN [Suspect]
     Indication: OBESITY
     Dosage: 3 MG, QD
     Route: 058
     Dates: start: 20110930

REACTIONS (1)
  - ANXIETY [None]
